FAERS Safety Report 12844256 (Version 4)
Quarter: 2017Q1

REPORT INFORMATION
  Report Type: Spontaneous
  Country: US (occurrence: US)
  Receive Date: 20161013
  Receipt Date: 20170322
  Transmission Date: 20170428
  Serious: Yes (Hospitalization)
  Sender: FDA-Public Use
  Company Number: US-ROCHE-1771609

PATIENT
  Age: 76 Year
  Sex: Male

DRUGS (23)
  1. PROSCAR [Concomitant]
     Active Substance: FINASTERIDE
  2. MUPIROCIN. [Concomitant]
     Active Substance: MUPIROCIN
  3. FLONASE (UNITED STATES) [Concomitant]
  4. VOLTAREN XR [Concomitant]
     Active Substance: DICLOFENAC SODIUM
  5. PULMICORT FLEXHALER [Concomitant]
     Active Substance: BUDESONIDE
  6. LEXAPRO [Concomitant]
     Active Substance: ESCITALOPRAM OXALATE
  7. OXYCODONE HYDROCHLORIDE. [Concomitant]
     Active Substance: OXYCODONE HYDROCHLORIDE
  8. VITAMIN B COMPLEX [Concomitant]
     Active Substance: CYANOCOBALAMIN\DEXPANTHENOL\NIACINAMIDE\PYRIDOXINE HYDROCHLORIDE\RIBOFLAVIN 5^-PHOSPHATE SODIUM\THIAMINE HYDROCHLORIDE\VITAMIN B COMPLEX
  9. ASPIRIN. [Concomitant]
     Active Substance: ASPIRIN
  10. FERROUS SULFATE. [Concomitant]
     Active Substance: FERROUS SULFATE
  11. TESTOSTERONE CYPIONATE. [Concomitant]
     Active Substance: TESTOSTERONE CYPIONATE
  12. PROVENTIL HFA [Concomitant]
     Active Substance: ALBUTEROL SULFATE
  13. OXYCONTIN [Concomitant]
     Active Substance: OXYCODONE HYDROCHLORIDE
  14. ZELBORAF [Suspect]
     Active Substance: VEMURAFENIB
     Indication: SMALL INTESTINE CARCINOMA
     Dosage: TWICE A DAY
     Route: 048
     Dates: start: 20160520
  15. CIALIS [Concomitant]
     Active Substance: TADALAFIL
  16. VYTORIN [Concomitant]
     Active Substance: EZETIMIBE\SIMVASTATIN
  17. DIPROLENE AF [Concomitant]
     Active Substance: BETAMETHASONE DIPROPIONATE
  18. SYNTHROID [Concomitant]
     Active Substance: LEVOTHYROXINE SODIUM
  19. FLOMAX [Concomitant]
     Active Substance: TAMSULOSIN HYDROCHLORIDE
  20. LEVBID [Concomitant]
     Active Substance: HYOSCYAMINE SULFATE
  21. ALLEGRA ALLERGY [Concomitant]
     Active Substance: FEXOFENADINE HYDROCHLORIDE
  22. SPIRIVA [Concomitant]
     Active Substance: TIOTROPIUM BROMIDE MONOHYDRATE
  23. WELLBUTRIN SR [Concomitant]
     Active Substance: BUPROPION HYDROCHLORIDE

REACTIONS (6)
  - Intentional product misuse [Unknown]
  - Intestinal resection [Unknown]
  - Disease progression [Unknown]
  - Dehydration [Unknown]
  - Therapeutic response decreased [Unknown]
  - Vomiting [Unknown]

NARRATIVE: CASE EVENT DATE: 20170103
